FAERS Safety Report 5638444-2 (Version None)
Quarter: 2008Q1

REPORT INFORMATION
  Report Type: 
  Country: None (occurrence: None)
  Receive Date: 20080222
  Receipt Date: 20080208
  Transmission Date: 20080703
  Serious: Yes (Death)
  Sender: FDA-Public Use
  Company Number: 2008JP000738

PATIENT
  Age: 25 Year
  Sex: Male

DRUGS (3)
  1. PROGRAF [Suspect]
     Indication: RENAL TRANSPLANT
     Dosage: 5 MG, D
  2. PREDNISOLONE [Concomitant]
  3. MYCOPHENOLATE MOFETIL [Concomitant]

REACTIONS (1)
  - ENCEPHALITIS VIRAL [None]
